FAERS Safety Report 13477123 (Version 1)
Quarter: 2017Q2

REPORT INFORMATION
  Report Type: Spontaneous
  Country: FR (occurrence: FR)
  Receive Date: 20170425
  Receipt Date: 20170425
  Transmission Date: 20170830
  Serious: Yes (Hospitalization)
  Sender: FDA-Public Use
  Company Number: FR-PFIZER INC-2017173599

PATIENT
  Age: 74 Year
  Sex: Male

DRUGS (6)
  1. OXALIPLATIN HOSPIRA [Suspect]
     Active Substance: OXALIPLATIN
     Indication: OESOPHAGEAL CARCINOMA
     Dosage: UNK
     Dates: start: 20160912
  2. FLUOROURACILE PFIZER [Suspect]
     Active Substance: FLUOROURACIL
     Dosage: DOSE REDUCTION TO 75%
     Route: 042
     Dates: start: 20161010, end: 20161010
  3. OXALIPLATIN HOSPIRA [Suspect]
     Active Substance: OXALIPLATIN
     Dosage: 85 MG/M2, CYCLIC
     Route: 042
     Dates: start: 20161010, end: 20161010
  4. FLUOROURACILE PFIZER [Suspect]
     Active Substance: FLUOROURACIL
     Indication: OESOPHAGEAL CARCINOMA
     Dosage: UNK
     Dates: start: 20160912
  5. CALCIUM FOLINATE ZENTIVA [Suspect]
     Active Substance: LEUCOVORIN CALCIUM
     Indication: OESOPHAGEAL CARCINOMA
     Dosage: UNK
     Dates: start: 20160912
  6. CALCIUM FOLINATE ZENTIVA [Suspect]
     Active Substance: LEUCOVORIN CALCIUM
     Dosage: 100 MG/M2, CYCLIC
     Route: 042
     Dates: start: 20161010, end: 20161010

REACTIONS (2)
  - Agranulocytosis [Recovered/Resolved]
  - Septic shock [Recovered/Resolved]

NARRATIVE: CASE EVENT DATE: 20161017
